FAERS Safety Report 4774698-2 (Version None)
Quarter: 2005Q3

REPORT INFORMATION
  Report Type: 
  Country: None (occurrence: None)
  Receive Date: 20050919
  Receipt Date: 20050909
  Transmission Date: 20060218
  Serious: Yes (Hospitalization)
  Sender: FDA-Public Use
  Company Number: 2005-09-0328

PATIENT
  Age: 47 Year
  Sex: Female
  Weight: 40.8237 kg

DRUGS (7)
  1. REBETOL [Suspect]
     Indication: HEPATITIS C
     Dosage: SEE IMAGE
     Route: 048
     Dates: start: 20050110, end: 20050602
  2. REBETOL [Suspect]
     Indication: HEPATITIS C
     Dosage: SEE IMAGE
     Route: 048
     Dates: end: 20050602
  3. REBETOL [Suspect]
     Indication: HEPATITIS C
     Dosage: SEE IMAGE
     Route: 048
     Dates: start: 20050110
  4. PEGASYS [Suspect]
     Indication: HEPATITIS C
     Dosage: 180 UG/QWK SUBCUTANEOUS
     Route: 058
     Dates: start: 20050110, end: 20050524
  5. DEROXAT [Suspect]
     Indication: DEPRESSION
     Dates: start: 20050202, end: 20050407
  6. NORVIR [Concomitant]
  7. ATAZANAVIR [Concomitant]

REACTIONS (18)
  - ANAEMIA [None]
  - AUTOIMMUNE HEPATITIS [None]
  - COAGULOPATHY [None]
  - DIARRHOEA [None]
  - ECCHYMOSIS [None]
  - ELECTROMYOGRAM ABNORMAL [None]
  - HAEMORRHAGE [None]
  - HEPATITIS VIRAL [None]
  - INJECTION SITE HAEMORRHAGE [None]
  - INSOMNIA [None]
  - LEUKOPENIA [None]
  - LYMPHOPENIA [None]
  - MYALGIA [None]
  - NEUTROPENIA [None]
  - PLATELET DISORDER [None]
  - PURPURA [None]
  - SKIN STRIAE [None]
  - WEIGHT DECREASED [None]
